FAERS Safety Report 5012599-5 (Version None)
Quarter: 2006Q2

REPORT INFORMATION
  Report Type: 
  Country: None (occurrence: None)
  Receive Date: 20060410
  Receipt Date: 20050906
  Transmission Date: 20061013
  Serious: Yes (Hospitalization)
  Sender: FDA-Public Use
  Company Number: 05P-163-0310464-00

PATIENT
  Age: 36 Year
  Sex: Male
  Weight: 63.5036 kg

DRUGS (3)
  1. DEPAKOTE [Suspect]
     Indication: CONVULSION
     Dosage: 500 MG, 4 IN 1 D, PER ORAL
     Route: 048
     Dates: start: 19950101, end: 20050501
  2. PHENYTOIN SODIUM [Concomitant]
  3. TRILEPTAL [Concomitant]

REACTIONS (3)
  - AMMONIA INCREASED [None]
  - CONVULSION [None]
  - HALLUCINATION [None]
